FAERS Safety Report 23815031 (Version 10)
Quarter: 2024Q4

REPORT INFORMATION
  Report Type: Report from Study
  Country: JP (occurrence: JP)
  Receive Date: 20240503
  Receipt Date: 20241110
  Transmission Date: 20250115
  Serious: Yes (Hospitalization, Other)
  Sender: ROCHE
  Company Number: JP-CHUGAI-2023016245AA

PATIENT
  Age: 65 Year
  Sex: Female
  Weight: 50.7 kg

DRUGS (3)
  1. TECENTRIQ [Suspect]
     Active Substance: ATEZOLIZUMAB
     Indication: Triple negative breast cancer
     Dosage: 840 MILLIGRAM
     Route: 065
     Dates: start: 20230209, end: 20240404
  2. PACLITAXEL [Suspect]
     Active Substance: PACLITAXEL
     Indication: Triple negative breast cancer
     Dosage: 100 MILLIGRAM/SQ. METER
     Route: 065
     Dates: start: 20230209, end: 20230413
  3. PACLITAXEL [Suspect]
     Active Substance: PACLITAXEL
     Dosage: UNK
     Route: 065
     Dates: start: 20230511, end: 20230831

REACTIONS (22)
  - Immune thrombocytopenia [Recovered/Resolved]
  - Liver disorder [Recovering/Resolving]
  - Alanine aminotransferase increased [Recovering/Resolving]
  - Decreased appetite [Not Recovered/Not Resolved]
  - Aspartate aminotransferase increased [Recovering/Resolving]
  - Amylase increased [Not Recovered/Not Resolved]
  - Blood alkaline phosphatase increased [Not Recovered/Not Resolved]
  - Fatigue [Not Recovered/Not Resolved]
  - Anaemia [Not Recovered/Not Resolved]
  - Pyrexia [Recovered/Resolved]
  - Malaise [Not Recovered/Not Resolved]
  - Herpes zoster [Recovered/Resolved]
  - Enterocolitis infectious [Recovered/Resolved]
  - Alopecia [Recovered/Resolved]
  - Nausea [Recovering/Resolving]
  - Anaemia [Recovering/Resolving]
  - Neutropenia [Recovered/Resolved]
  - Cough [Recovered/Resolved]
  - Neuropathy peripheral [Not Recovered/Not Resolved]
  - Fatigue [Recovering/Resolving]
  - Diarrhoea [Recovered/Resolved]
  - Decreased appetite [Not Recovered/Not Resolved]

NARRATIVE: CASE EVENT DATE: 20230216
